FAERS Safety Report 7606310-9 (Version None)
Quarter: 2011Q3

REPORT INFORMATION
  Report Type: 
  Country: None (occurrence: None)
  Receive Date: 20110713
  Receipt Date: 20110630
  Transmission Date: 20111222
  Serious: Yes (Other)
  Sender: FDA-Public Use
  Company Number: US-BAYER-201039958NA

PATIENT
  Age: 22 Year
  Sex: Female
  Weight: 82 kg

DRUGS (4)
  1. WARFARIN SODIUM [Concomitant]
     Dosage: 5 MG, UNK
  2. DROSPIRENONE AND ETHINYL ESTRADIOL [Suspect]
     Indication: CONTRACEPTION
     Dosage: UNK
     Route: 048
     Dates: start: 20080601, end: 20090101
  3. PRAVASTATIN [Concomitant]
     Dosage: 20 MG, UNK
  4. YASMIN [Suspect]
     Indication: CONTRACEPTION
     Dosage: UNK
     Route: 048
     Dates: start: 20080601, end: 20090101

REACTIONS (1)
  - PULMONARY EMBOLISM [None]
